FAERS Safety Report 9354904 (Version 1)
Quarter: 2013Q2

REPORT INFORMATION
  Report Type: Spontaneous
  Country: US (occurrence: None)
  Receive Date: 20130618
  Receipt Date: 20130618
  Transmission Date: 20140414
  Serious: No
  Sender: FDA-Public Use
  Company Number: None

PATIENT
  Age: 67 Year
  Sex: Female
  Weight: 68.04 kg

DRUGS (10)
  1. MULTAQ [Suspect]
     Indication: ARRHYTHMIA
     Route: 048
     Dates: start: 20130501, end: 20130603
  2. MULTAQ [Suspect]
     Indication: ATRIAL FIBRILLATION
     Route: 048
     Dates: start: 20130501, end: 20130603
  3. COZAAR [Concomitant]
  4. VERAPAMIL [Concomitant]
  5. LOVASTATIN [Concomitant]
  6. WARFARIN [Concomitant]
  7. FISH OIL [Concomitant]
  8. CALCIUM [Concomitant]
  9. VIT D3 [Concomitant]
  10. VIT A [Concomitant]

REACTIONS (5)
  - Feeling abnormal [None]
  - Somnolence [None]
  - Drug dose omission [None]
  - Impaired driving ability [None]
  - Road traffic accident [None]
